FAERS Safety Report 8719498 (Version 2)
Quarter: 2012Q4

REPORT INFORMATION
  Report Type: 
  Country: US (occurrence: US)
  Receive Date: 20120813
  Receipt Date: 20121121
  Transmission Date: 20130627
  Serious: Yes (Other)
  Sender: FDA-Public Use
  Company Number: US-US-EMD SERONO, INC.-7152649

PATIENT
  Sex: Male
  Weight: 75 kg

DRUGS (2)
  1. REBIF [Suspect]
     Indication: MULTIPLE SCLEROSIS
     Route: 058
     Dates: start: 20110527
  2. NEURONTIN [Concomitant]
     Indication: BACK PAIN

REACTIONS (4)
  - Transient ischaemic attack [Recovered/Resolved]
  - Tremor [Unknown]
  - Skin mass [Not Recovered/Not Resolved]
  - Agitation [Unknown]
